FAERS Safety Report 25285978 (Version 1)
Quarter: 2025Q2

REPORT INFORMATION
  Report Type: Spontaneous
  Country: JP (occurrence: JP)
  Receive Date: 20250509
  Receipt Date: 20250509
  Transmission Date: 20250717
  Serious: Yes (Other)
  Sender: GLAXOSMITHKLINE
  Company Number: JP-GSKJP-JP2025JPN055873AA

PATIENT

DRUGS (1)
  1. BENLYSTA [Suspect]
     Active Substance: BELIMUMAB
     Indication: Systemic lupus erythematosus

REACTIONS (5)
  - Autoimmune thyroiditis [Unknown]
  - Interstitial lung disease [Unknown]
  - Injection site pain [Unknown]
  - Butterfly rash [Unknown]
  - Hiatus hernia [Unknown]
